FAERS Safety Report 7232836-6 (Version None)
Quarter: 2011Q1

REPORT INFORMATION
  Report Type: 
  Country: None (occurrence: None)
  Receive Date: 20110119
  Receipt Date: 20110105
  Transmission Date: 20110831
  Serious: Yes (Hospitalization)
  Sender: FDA-Public Use
  Company Number: DE-CELGENEUS-062-21880-10122185

PATIENT
  Age: 52 Year
  Sex: Female
  Weight: 42 kg

DRUGS (11)
  1. MAGNESIUM [Concomitant]
     Route: 065
     Dates: start: 20101201
  2. OLICLINOMEL N4-440 E [Concomitant]
     Indication: NUTRITIONAL SUPPORT
     Route: 051
     Dates: start: 20101201, end: 20101228
  3. DECORTIN [Concomitant]
     Route: 065
     Dates: start: 20101201
  4. ASPIRIN [Concomitant]
     Route: 065
  5. REVLIMID [Suspect]
     Route: 048
     Dates: start: 20101125, end: 20101215
  6. COTRIM [Concomitant]
     Route: 065
  7. FOLSAN [Concomitant]
     Route: 065
  8. NUTRIFLEX ^BRAUN^ [Concomitant]
     Indication: NUTRITIONAL SUPPORT
     Route: 051
     Dates: start: 20101201, end: 20101228
  9. REVLIMID [Suspect]
     Indication: ACUTE MYELOID LEUKAEMIA
     Route: 048
     Dates: start: 20100819
  10. VALCYTE [Concomitant]
     Indication: PROPHYLAXIS
     Route: 065
     Dates: start: 20101007
  11. DECORTIN [Concomitant]
     Indication: THROMBOSIS PROPHYLAXIS
     Route: 065
     Dates: start: 20100901

REACTIONS (2)
  - GASTROENTERITIS CLOSTRIDIAL [None]
  - GRAFT VERSUS HOST DISEASE [None]
